FAERS Safety Report 8923055 (Version 1)
Quarter: 2012Q4

REPORT INFORMATION
  Report Type: Spontaneous
  Country: US (occurrence: None)
  Receive Date: 20121115
  Receipt Date: 20121115
  Transmission Date: 20130627
  Serious: Yes (Hospitalization)
  Sender: FDA-Public Use
  Company Number: US-010046

PATIENT
  Age: 50 Year
  Sex: Male

DRUGS (15)
  1. DEGARELIX [Suspect]
     Indication: PRODUCT USED FOR UNKNOWN INDICATION
     Route: 058
     Dates: start: 20121105
  2. OMEPRAZOLE [Concomitant]
  3. VIMPAT [Concomitant]
  4. ASPIRIN [Concomitant]
  5. DILAUDID [Concomitant]
  6. DIPHENHYDRAMINE HYDROCHLORIDE [Concomitant]
  7. FEXOFENADINE HYDROCHLORIDE [Concomitant]
  8. SERTRALINE HYDROCHLORIDE [Concomitant]
  9. TRAZODONE HYDROCHLORIDE [Concomitant]
  10. KEPPRA [Concomitant]
  11. PROMETHAZINE HYDROCHLORIDE WITH CODEINE [Concomitant]
  12. TRICOR [Concomitant]
  13. VALTREX [Concomitant]
  14. ZITHROMAX [Concomitant]
  15. TESSALON PERLE [Suspect]

REACTIONS (1)
  - Convulsion [None]
